FAERS Safety Report 21770234 (Version 1)
Quarter: 2022Q4

REPORT INFORMATION
  Report Type: Report from Study
  Country: US (occurrence: US)
  Receive Date: 20221223
  Receipt Date: 20221223
  Transmission Date: 20230113
  Serious: No
  Sender: FDA-Public Use
  Company Number: US-ABBVIE-4246332

PATIENT
  Sex: Female

DRUGS (16)
  1. RINVOQ [Suspect]
     Active Substance: UPADACITINIB
     Indication: Dermatitis atopic
     Dosage: FORM STRENGTH: 15 MG
     Route: 048
     Dates: start: 2022
  2. RINVOQ [Suspect]
     Active Substance: UPADACITINIB
     Indication: Dermatitis atopic
     Dosage: FORM STRENGTH: 15 MG
     Route: 058
     Dates: start: 20220712, end: 2022
  3. CALTRATE +D3 [Concomitant]
     Indication: Product used for unknown indication
     Dosage: 600-800
     Route: 048
  4. CALTRATE +D3 [Concomitant]
     Indication: Product used for unknown indication
     Dosage: 600-800
     Route: 048
  5. PREDNISONE [Concomitant]
     Active Substance: PREDNISONE
     Indication: Product used for unknown indication
     Route: 048
  6. PREDNISONE [Concomitant]
     Active Substance: PREDNISONE
     Indication: Product used for unknown indication
     Route: 048
  7. SINGULAIR TAB 10MG [Concomitant]
     Indication: Product used for unknown indication
     Route: 048
  8. SINGULAIR TAB 10MG [Concomitant]
     Indication: Product used for unknown indication
     Route: 048
  9. ZYRTEC ALLGY TAB 10MG [Concomitant]
     Indication: Product used for unknown indication
     Route: 048
  10. ZYRTEC ALLGY TAB 10MG [Concomitant]
     Indication: Product used for unknown indication
     Route: 048
  11. NEXIUM CAP 40MG [Concomitant]
     Indication: Product used for unknown indication
     Route: 048
  12. NEXIUM CAP 40MG [Concomitant]
     Indication: Product used for unknown indication
     Route: 048
  13. ASPIRIN TAB 81MG EC [Concomitant]
     Indication: Product used for unknown indication
     Route: 048
  14. ASPIRIN TAB 81MG EC [Concomitant]
     Indication: Product used for unknown indication
     Route: 048
  15. VITAMIN D CAP 50000UNT [Concomitant]
     Indication: Product used for unknown indication
     Route: 048
  16. VITAMIN D CAP 50000UNT [Concomitant]
     Indication: Product used for unknown indication
     Route: 048

REACTIONS (1)
  - Pneumonia [Recovered/Resolved]

NARRATIVE: CASE EVENT DATE: 20220101
